FAERS Safety Report 12123240 (Version 1)
Quarter: 2016Q1

REPORT INFORMATION
  Report Type: Spontaneous
  Country: US (occurrence: None)
  Receive Date: 20160226
  Receipt Date: 20160226
  Transmission Date: 20160526
  Serious: No
  Sender: FDA-Public Use
  Company Number: None

PATIENT
  Age: 65 Year
  Sex: Female

DRUGS (4)
  1. SYNTHROID [Concomitant]
     Active Substance: LEVOTHYROXINE SODIUM
  2. VALACYCLOVIR [Concomitant]
     Active Substance: VALACYCLOVIR HYDROCHLORIDE
  3. PROLIA [Suspect]
     Active Substance: DENOSUMAB
     Indication: BONE LOSS
     Dates: start: 20141203, end: 20150727
  4. TELMISARTAN. [Concomitant]
     Active Substance: TELMISARTAN

REACTIONS (10)
  - Hypotension [None]
  - Fatigue [None]
  - Malaise [None]
  - Constipation [None]
  - Chest discomfort [None]
  - Abdominal distension [None]
  - Tinnitus [None]
  - Dizziness [None]
  - Palpitations [None]
  - Dyspnoea [None]

NARRATIVE: CASE EVENT DATE: 20141203
